FAERS Safety Report 21208761 (Version 2)
Quarter: 2022Q3

REPORT INFORMATION
  Report Type: Report from Study
  Country: CA (occurrence: CA)
  Receive Date: 20220812
  Receipt Date: 20220817
  Transmission Date: 20221026
  Serious: Yes (Other)
  Sender: FDA-Public Use
  Company Number: CA-NOVARTISPH-NVSC2022CA180262

PATIENT
  Sex: Male

DRUGS (2)
  1. PIRFENIDONE [Suspect]
     Active Substance: PIRFENIDONE
     Indication: Rheumatoid arthritis-associated interstitial lung disease
     Dosage: 2403 MG/KG
     Route: 048
  2. ALBUTEROL [Concomitant]
     Active Substance: ALBUTEROL
     Indication: Product used for unknown indication
     Dosage: UNK, (CONC: 400 MCG)
     Route: 065

REACTIONS (11)
  - Rheumatoid arthritis [Recovering/Resolving]
  - Arthralgia [Unknown]
  - Arthropathy [Unknown]
  - Joint stiffness [Unknown]
  - Musculoskeletal stiffness [Unknown]
  - Pain [Unknown]
  - Gait inability [Unknown]
  - Dyspnoea [Unknown]
  - Cough [Unknown]
  - Arterial tortuosity syndrome [Unknown]
  - Lung diffusion test decreased [Unknown]
